FAERS Safety Report 7228819-2 (Version None)
Quarter: 2011Q1

REPORT INFORMATION
  Report Type: 
  Country: None (occurrence: None)
  Receive Date: 20110117
  Receipt Date: 20110111
  Transmission Date: 20110831
  Serious: Yes (Other)
  Sender: FDA-Public Use
  Company Number: BR-SHIRE-SPV1-2010-02259

PATIENT
  Age: 11 Year
  Sex: Male

DRUGS (4)
  1. FLEBOCORTID [Concomitant]
     Indication: INFUSION RELATED REACTION
     Dosage: 200 MG, 1X/WEEK
  2. FLEBOCORTID [Concomitant]
     Dosage: 500 MG, ONE DOSE
     Dates: start: 20100826, end: 20100826
  3. ELAPRASE [Suspect]
     Indication: MUCOPOLYSACCHARIDOSIS II
     Dosage: 2 UNK, 1X/WEEK
     Route: 041
     Dates: start: 20080101
  4. BENADRYL [Concomitant]
     Indication: INFUSION RELATED REACTION
     Dosage: UNK, 1X/WEEK

REACTIONS (6)
  - CYANOSIS [None]
  - INFUSION RELATED REACTION [None]
  - THROAT IRRITATION [None]
  - DYSPNOEA [None]
  - TREMOR [None]
  - TONSILLAR INFLAMMATION [None]
